FAERS Safety Report 6768715-8 (Version None)
Quarter: 2010Q2

REPORT INFORMATION
  Report Type: 
  Country: None (occurrence: None)
  Receive Date: 20100614
  Receipt Date: 20100602
  Transmission Date: 20101027
  Serious: Yes (Life-Threatening, Hospitalization, Other)
  Sender: FDA-Public Use
  Company Number: DE-AMGEN-UK065618

PATIENT
  Sex: Male
  Weight: 87 kg

DRUGS (4)
  1. NEUPOGEN [Suspect]
     Indication: DRUG USE FOR UNKNOWN INDICATION
     Route: 058
     Dates: start: 20040111, end: 20040111
  2. HEPARIN SODIUM [Suspect]
     Route: 042
     Dates: start: 20040111, end: 20040111
  3. CONCOR [Concomitant]
     Route: 048
  4. IRBESARTAN [Concomitant]
     Route: 048

REACTIONS (2)
  - CEREBRAL HAEMORRHAGE [None]
  - PNEUMONIA [None]
